FAERS Safety Report 7479973-9 (Version None)
Quarter: 2011Q2

REPORT INFORMATION
  Report Type: 
  Country: None (occurrence: None)
  Receive Date: 20110516
  Receipt Date: 20110504
  Transmission Date: 20111010
  Serious: Yes (Hospitalization, Other)
  Sender: FDA-Public Use
  Company Number: US-BIOGENIDEC-2010BI045304

PATIENT
  Age: 26 Year
  Sex: Male

DRUGS (1)
  1. AVONEX [Suspect]
     Indication: MULTIPLE SCLEROSIS
     Route: 030
     Dates: start: 20100916

REACTIONS (5)
  - PARAESTHESIA [None]
  - MECHANICAL VENTILATION [None]
  - CONVULSION [None]
  - GASTROINTESTINAL TUBE INSERTION [None]
  - HYPOAESTHESIA [None]
